FAERS Safety Report 5731999-9 (Version None)
Quarter: 2008Q2

REPORT INFORMATION
  Report Type: 
  Country: None (occurrence: None)
  Receive Date: 20080508
  Receipt Date: 20080501
  Transmission Date: 20081010
  Serious: Yes (Hospitalization, Other)
  Sender: FDA-Public Use
  Company Number: CA-JNJFOC-20080107593

PATIENT
  Sex: Male
  Weight: 63.5 kg

DRUGS (4)
  1. RISPERDAL [Suspect]
     Indication: SCHIZOPHRENIA
     Route: 048
  2. RISPERDAL CONSTA [Suspect]
     Route: 050
  3. RISPERDAL CONSTA [Suspect]
     Indication: SCHIZOPHRENIA
     Route: 050
  4. VALPORIC ACID [Concomitant]
     Indication: CONVULSION

REACTIONS (29)
  - AGRAPHIA [None]
  - CONSTIPATION [None]
  - DISCOMFORT [None]
  - ECZEMA [None]
  - ERECTILE DYSFUNCTION [None]
  - GAIT DISTURBANCE [None]
  - HAIR GROWTH ABNORMAL [None]
  - HALLUCINATION [None]
  - HEADACHE [None]
  - INCONTINENCE [None]
  - LIP EXFOLIATION [None]
  - LIVER FUNCTION TEST ABNORMAL [None]
  - NEUROLEPTIC MALIGNANT SYNDROME [None]
  - NIPPLE PAIN [None]
  - OEDEMA [None]
  - OEDEMA PERIPHERAL [None]
  - PAIN [None]
  - RHINORRHOEA [None]
  - SKIN INJURY [None]
  - STRESS [None]
  - SUICIDE ATTEMPT [None]
  - TARDIVE DYSKINESIA [None]
  - TINNITUS [None]
  - TONGUE COATED [None]
  - TREMOR [None]
  - URINARY TRACT DISORDER [None]
  - VARICOSE VEIN [None]
  - VISUAL DISTURBANCE [None]
  - WEIGHT INCREASED [None]
